FAERS Safety Report 10592448 (Version 1)
Quarter: 2014Q4

REPORT INFORMATION
  Report Type: Spontaneous
  Country: US (occurrence: None)
  Receive Date: 20141117
  Receipt Date: 20141117
  Transmission Date: 20150529
  Serious: Yes (Life-Threatening, Hospitalization, Other)
  Sender: FDA-Public Use
  Company Number: ADR-2014-02108

PATIENT
  Age: 41 Year
  Sex: Male

DRUGS (4)
  1. CYPROHEPTADINE. [Suspect]
     Active Substance: CYPROHEPTADINE
  2. BACLOFEN (ORAL) [Suspect]
     Active Substance: BACLOFEN
     Indication: PYREXIA
  3. PROPRANOLOL [Suspect]
     Active Substance: PROPRANOLOL\PROPRANOLOL HYDROCHLORIDE
  4. BACLOFEN INTRATHECAL [Suspect]
     Active Substance: BACLOFEN
     Indication: MUSCLE SPASTICITY

REACTIONS (7)
  - Tachycardia [None]
  - Urosepsis [None]
  - Agitation [None]
  - Spinal column stenosis [None]
  - Hypertension [None]
  - Muscle spasms [None]
  - Drug withdrawal syndrome [None]

NARRATIVE: CASE EVENT DATE: 20140101
